FAERS Safety Report 7438582-8 (Version None)
Quarter: 2011Q2

REPORT INFORMATION
  Report Type: 
  Country: None (occurrence: None)
  Receive Date: 20110426
  Receipt Date: 20110420
  Transmission Date: 20111010
  Serious: Yes (Death, Hospitalization, Disabling, Other)
  Sender: FDA-Public Use
  Company Number: US-AMGEN-QUU434127

PATIENT
  Age: 81 Year
  Sex: Male

DRUGS (4)
  1. DANAZOL [Concomitant]
  2. IMMUNOGLOBULINS [Concomitant]
  3. NPLATE [Suspect]
     Indication: IDIOPATHIC THROMBOCYTOPENIC PURPURA
     Dosage: 9 A?G/KG, UNK
     Dates: start: 20090714, end: 20091027
  4. CORTICOSTEROIDS [Concomitant]

REACTIONS (8)
  - THERAPEUTIC RESPONSE DECREASED [None]
  - MYELOPROLIFERATIVE DISORDER [None]
  - ATELECTASIS [None]
  - BONE MARROW DISORDER [None]
  - HYPERHIDROSIS [None]
  - PYREXIA [None]
  - DEATH [None]
  - CHEST PAIN [None]
